FAERS Safety Report 25815066 (Version 1)
Quarter: 2025Q3

REPORT INFORMATION
  Report Type: Spontaneous
  Country: EU (occurrence: EU)
  Receive Date: 20250918
  Receipt Date: 20250918
  Transmission Date: 20251020
  Serious: Yes (Other)
  Sender: REGENERON
  Company Number: None

PATIENT
  Age: 89 Year
  Sex: Female

DRUGS (2)
  1. EYLEA [Suspect]
     Active Substance: AFLIBERCEPT
     Indication: Age-related macular degeneration
     Route: 031
     Dates: start: 20241015, end: 20250901
  2. EYLEA [Suspect]
     Active Substance: AFLIBERCEPT

REACTIONS (1)
  - Visual acuity reduced [Recovering/Resolving]

NARRATIVE: CASE EVENT DATE: 20250901
